FAERS Safety Report 10512742 (Version 2)
Quarter: 2014Q4

REPORT INFORMATION
  Report Type: Spontaneous
  Country: GR (occurrence: GR)
  Receive Date: 20141013
  Receipt Date: 20141031
  Transmission Date: 20150528
  Serious: Yes (Hospitalization)
  Sender: FDA-Public Use
  Company Number: GR-ROCHE-1472707

PATIENT
  Age: 47 Year
  Sex: Female
  Weight: 110 kg

DRUGS (4)
  1. ZANIDIP [Concomitant]
     Active Substance: LERCANIDIPINE HYDROCHLORIDE
     Route: 065
  2. LOBIVON [Concomitant]
     Active Substance: NEBIVOLOL HYDROCHLORIDE
  3. XOLAIR [Suspect]
     Active Substance: OMALIZUMAB
     Indication: ASTHMA
     Route: 065
     Dates: start: 20140910
  4. XOLAIR [Suspect]
     Active Substance: OMALIZUMAB
     Route: 065
     Dates: start: 20141014

REACTIONS (12)
  - Cerebral atrophy [Recovering/Resolving]
  - Red blood cell sedimentation rate increased [Recovering/Resolving]
  - Blood cholesterol increased [Recovering/Resolving]
  - Complement factor C3 increased [Recovering/Resolving]
  - Blood triglycerides increased [Recovering/Resolving]
  - Lip injury [Recovering/Resolving]
  - Cerebrovascular accident [Recovering/Resolving]
  - Glucose tolerance impaired [Recovering/Resolving]
  - Fall [Recovering/Resolving]
  - Glucose tolerance test abnormal [Recovering/Resolving]
  - Heart valve incompetence [Recovering/Resolving]
  - Hypertension [Recovering/Resolving]

NARRATIVE: CASE EVENT DATE: 20140921
